FAERS Safety Report 24754986 (Version 1)
Quarter: 2024Q4

REPORT INFORMATION
  Report Type: Spontaneous
  Country: PT (occurrence: PT)
  Receive Date: 20241219
  Receipt Date: 20241219
  Transmission Date: 20250115
  Serious: Yes (Hospitalization)
  Sender: TEVA
  Company Number: None

PATIENT
  Age: 55 Year
  Sex: Male
  Weight: 107 kg

DRUGS (3)
  1. AZITHROMYCIN [Suspect]
     Active Substance: AZITHROMYCIN
     Indication: Laryngitis
     Dosage: 1 PER DAY, 3 DAYS
     Route: 048
     Dates: start: 20240923, end: 20240925
  2. IBUPROFEN [Concomitant]
     Active Substance: IBUPROFEN
     Indication: Product used for unknown indication
     Route: 048
  3. DESLORATADINE\PSEUDOEPHEDRINE [Concomitant]
     Active Substance: DESLORATADINE\PSEUDOEPHEDRINE
     Indication: Product used for unknown indication
     Dosage: PSEUDOEPHEDRINE SULFATE STRENGTH :120MG, DESLORATADINE STRENGTH :2.5 MG
     Route: 048

REACTIONS (2)
  - Rash macular [Recovering/Resolving]
  - Pain [Recovering/Resolving]

NARRATIVE: CASE EVENT DATE: 20240923
